FAERS Safety Report 6877176-X (Version None)
Quarter: 2010Q3

REPORT INFORMATION
  Report Type: 
  Country: None (occurrence: None)
  Receive Date: 20100727
  Receipt Date: 20100715
  Transmission Date: 20110219
  Serious: Yes (Congenital Anomaly)
  Sender: FDA-Public Use
  Company Number: US-GILEAD-2010-0030481

PATIENT

DRUGS (5)
  1. TRUVADA [Suspect]
     Indication: HIV INFECTION
  2. NORVIR [Concomitant]
  3. PREZISTA [Concomitant]
  4. INTELENCE [Concomitant]
  5. ISENTRESS [Concomitant]

REACTIONS (1)
  - CONGENITAL ANOMALY [None]
